FAERS Safety Report 12616454 (Version 1)
Quarter: 2016Q3

REPORT INFORMATION
  Report Type: Spontaneous
  Country: US (occurrence: US)
  Receive Date: 20160802
  Receipt Date: 20160802
  Transmission Date: 20161109
  Serious: No
  Sender: FDA-Public Use
  Company Number: US-009507513-1607USA011601

PATIENT

DRUGS (2)
  1. INVANZ [Suspect]
     Active Substance: ERTAPENEM SODIUM
  2. DEXTROSE. [Suspect]
     Active Substance: DEXTROSE
     Dosage: 100 ML, UNK

REACTIONS (2)
  - Product use issue [Unknown]
  - No adverse event [Unknown]
